FAERS Safety Report 14554995 (Version 4)
Quarter: 2018Q1

REPORT INFORMATION
  Report Type: Report from Study
  Country: CA (occurrence: CA)
  Receive Date: 20180220
  Receipt Date: 20180309
  Transmission Date: 20180509
  Serious: Yes (Death, Hospitalization, Other)
  Sender: FDA-Public Use
  Company Number: CA-SA-2017SA256226

PATIENT
  Sex: Female

DRUGS (5)
  1. LEMTRADA [Suspect]
     Active Substance: ALEMTUZUMAB
     Indication: RELAPSING-REMITTING MULTIPLE SCLEROSIS
     Route: 041
     Dates: start: 20171211, end: 20171213
  2. REACTINE [Concomitant]
     Active Substance: CETIRIZINE HYDROCHLORIDE
     Indication: PREMEDICATION
     Route: 048
     Dates: start: 20171211, end: 20171213
  3. METHYLPREDNISOLONE. [Concomitant]
     Active Substance: METHYLPREDNISOLONE
     Indication: PREMEDICATION
     Route: 042
     Dates: start: 20171211, end: 20171213
  4. RANITIDINE. [Concomitant]
     Active Substance: RANITIDINE
     Indication: PREMEDICATION
     Route: 048
     Dates: start: 20171211, end: 20171213
  5. TYLENOL [Concomitant]
     Active Substance: ACETAMINOPHEN
     Dosage: DOSE: 500-1000 MG
     Route: 048
     Dates: start: 20171211

REACTIONS (12)
  - Cardiac arrest [Fatal]
  - Haemoptysis [Unknown]
  - Infusion site extravasation [Recovered/Resolved]
  - Eye disorder [Not Recovered/Not Resolved]
  - Sepsis [Not Recovered/Not Resolved]
  - Headache [Recovered/Resolved]
  - Pneumonia necrotising [Fatal]
  - Respiratory failure [Fatal]
  - Pleural effusion [Unknown]
  - Disseminated intravascular coagulation [Fatal]
  - Lymphocyte count decreased [Unknown]
  - Staphylococcal infection [Fatal]

NARRATIVE: CASE EVENT DATE: 20171211
